FAERS Safety Report 5049134-1 (Version None)
Quarter: 2006Q3

REPORT INFORMATION
  Report Type: 
  Country: None (occurrence: None)
  Receive Date: 20060712
  Receipt Date: 20060313
  Transmission Date: 20061208
  Serious: No
  Sender: FDA-Public Use
  Company Number: US-GLAXOSMITHKLINE-A0597854A

PATIENT
  Age: 43 Year
  Sex: Female

DRUGS (1)
  1. IMITREX [Suspect]
     Indication: MIGRAINE
     Route: 048
     Dates: start: 20060113, end: 20060213

REACTIONS (3)
  - CHEST PAIN [None]
  - DYSPNOEA [None]
  - PAIN IN JAW [None]
